FAERS Safety Report 8503046-7 (Version None)
Quarter: 2012Q3

REPORT INFORMATION
  Report Type: 
  Country: None (occurrence: None)
  Receive Date: 20120711
  Receipt Date: 20120704
  Transmission Date: 20120928
  Serious: Yes (Death, Life-Threatening, Other)
  Sender: FDA-Public Use
  Company Number: HU-ELI_LILLY_AND_COMPANY-HU201206001349

PATIENT
  Age: 92 Year
  Sex: Female

DRUGS (3)
  1. ANALGESIC                          /06426301/ [Concomitant]
  2. TERIPARATIDE [Suspect]
     Indication: OSTEOPOROSIS
     Dosage: UNK
     Route: 058
     Dates: start: 20120101, end: 20120501
  3. CORTICOSTEROID NOS [Concomitant]

REACTIONS (3)
  - SHOCK HAEMORRHAGIC [None]
  - DUODENAL ULCER [None]
  - RESPIRATORY FAILURE [None]
